FAERS Safety Report 16989396 (Version 1)
Quarter: 2019Q4

REPORT INFORMATION
  Report Type: Spontaneous
  Country: US (occurrence: US)
  Receive Date: 20191101
  Receipt Date: 20191101
  Transmission Date: 20200122
  Serious: Yes (Other)
  Sender: FDA-Public Use
  Company Number: None

PATIENT
  Age: 81 Year
  Sex: Female
  Weight: 99.45 kg

DRUGS (11)
  1. ANTI-DIARRHEAL [Suspect]
     Active Substance: LOPERAMIDE HYDROCHLORIDE
     Indication: DIARRHOEA
     Dosage: ?          QUANTITY:2 TABLET(S);OTHER FREQUENCY:2 AND THEN 1;?
     Route: 048
     Dates: start: 20191021, end: 20191024
  2. HYDROCHLOROTHIAZIDE 25 MG [Concomitant]
     Active Substance: HYDROCHLOROTHIAZIDE
  3. DEXAMETHASONE 4 MG [Concomitant]
     Active Substance: DEXAMETHASONE
  4. TAXOTERE [Concomitant]
     Active Substance: DOCETAXEL
  5. HERCEPTIN [Concomitant]
     Active Substance: TRASTUZUMAB
  6. PERJETA [Concomitant]
     Active Substance: PERTUZUMAB
  7. KRILL OIL OMEGA-3 300 MG [Concomitant]
  8. FUROSEMIDE 20 MG [Concomitant]
     Active Substance: FUROSEMIDE
  9. METOPROLOL TARTRATE 25 MG [Concomitant]
     Active Substance: METOPROLOL TARTRATE
  10. ASPIRIN EC 81 MG [Concomitant]
  11. SIMVASTATIN 40 MG [Concomitant]
     Active Substance: SIMVASTATIN

REACTIONS (7)
  - Skin tightness [None]
  - Peripheral swelling [None]
  - Skin warm [None]
  - Skin weeping [None]
  - Erythema [None]
  - Skin disorder [None]
  - Infection [None]

NARRATIVE: CASE EVENT DATE: 20191029
